FAERS Safety Report 9956145 (Version 1)
Quarter: 2014Q1

REPORT INFORMATION
  Report Type: Report from Study
  Country: US (occurrence: US)
  Receive Date: 20140304
  Receipt Date: 20140304
  Transmission Date: 20141002
  Serious: No
  Sender: FDA-Public Use
  Company Number: US-ABBVIE-13P-163-1089300-00

PATIENT
  Age: 41 Year
  Sex: Female
  Weight: 131.66 kg

DRUGS (7)
  1. HUMIRA [Suspect]
     Indication: RHEUMATOID ARTHRITIS
     Dates: start: 201102, end: 201212
  2. HUMIRA [Suspect]
     Dates: start: 201212, end: 201301
  3. HUMIRA [Suspect]
     Dates: start: 201301, end: 201301
  4. HUMIRA [Suspect]
     Dates: start: 201302
  5. METHOTREXATE [Concomitant]
     Indication: PRODUCT USED FOR UNKNOWN INDICATION
     Dates: start: 1996
  6. UNKNOWN OINTMENT [Concomitant]
     Indication: PRODUCT USED FOR UNKNOWN INDICATION
  7. CYCLOBENZAPRINE [Concomitant]
     Indication: MUSCLE RELAXANT THERAPY
     Dosage: AS NEEDED

REACTIONS (9)
  - Blister [Recovered/Resolved]
  - Blister [Recovered/Resolved]
  - Dyshidrotic eczema [Not Recovered/Not Resolved]
  - Hepatic function abnormal [Recovered/Resolved]
  - Hypertension [Unknown]
  - Rheumatoid arthritis [Recovered/Resolved]
  - Skin lesion [Unknown]
  - Dry skin [Unknown]
  - Upper respiratory tract infection [Recovered/Resolved]
